FAERS Safety Report 14397859 (Version 2)
Quarter: 2018Q1

REPORT INFORMATION
  Report Type: Report from Study
  Country: US (occurrence: US)
  Receive Date: 20180116
  Receipt Date: 20180307
  Transmission Date: 20180509
  Serious: Yes (Hospitalization)
  Sender: FDA-Public Use
  Company Number: US-ACTELION-A-NJ2017-164619

PATIENT
  Age: 78 Year
  Sex: Female

DRUGS (9)
  1. FORTEO [Concomitant]
     Active Substance: TERIPARATIDE
     Dosage: 20 MCG, QD
     Dates: start: 20170118
  2. CRESTOR [Concomitant]
     Active Substance: ROSUVASTATIN CALCIUM
     Dosage: 10 MG, QD
  3. OPSUMIT [Suspect]
     Active Substance: MACITENTAN
     Indication: PULMONARY ARTERIAL HYPERTENSION
     Dosage: 10 MG, QD
     Route: 048
     Dates: start: 20171121
  4. SPIRONOLACTONE. [Concomitant]
     Active Substance: SPIRONOLACTONE
     Dosage: 12.5 MG, QD
     Dates: start: 201709
  5. SYMBICORT [Concomitant]
     Active Substance: BUDESONIDE\FORMOTEROL FUMARATE DIHYDRATE
     Dosage: 2 PUFFS 160/4.5, BID
     Dates: start: 2015
  6. WARFARIN [Concomitant]
     Active Substance: WARFARIN
     Dosage: 6 MG QPM AND 9MG M/F
     Dates: start: 2004
  7. LANTUS [Concomitant]
     Active Substance: INSULIN GLARGINE
     Dosage: 28 U, QPM
  8. NOVOLOG [Concomitant]
     Active Substance: INSULIN ASPART
     Dosage: 10-12 UNITS QPM
  9. LOSARTAN. [Concomitant]
     Active Substance: LOSARTAN
     Dosage: 50 MG, QD
     Dates: start: 2016

REACTIONS (13)
  - Dyspnoea exertional [Not Recovered/Not Resolved]
  - Wheezing [Recovering/Resolving]
  - Drug dose omission [Recovered/Resolved]
  - Sinus disorder [Unknown]
  - Hypersensitivity [Unknown]
  - Gastroenteritis viral [Recovered/Resolved]
  - Condition aggravated [Not Recovered/Not Resolved]
  - Oedema peripheral [Recovering/Resolving]
  - Drug level below therapeutic [Not Recovered/Not Resolved]
  - Oedema [Unknown]
  - Dyspnoea [Unknown]
  - Dysgeusia [Unknown]
  - Hypoglycaemia [Unknown]

NARRATIVE: CASE EVENT DATE: 201712
